FAERS Safety Report 9057399 (Version 3)
Quarter: 2013Q2

REPORT INFORMATION
  Report Type: Spontaneous
  Country: GB (occurrence: GB)
  Receive Date: 20130204
  Receipt Date: 20130515
  Transmission Date: 20140414
  Serious: Yes (Other)
  Sender: FDA-Public Use
  Company Number: GB-VERTEX PHARMACEUTICALS INC.-2013-001465

PATIENT
  Age: 57 Year
  Sex: Male
  Weight: 78 kg

DRUGS (15)
  1. INCIVO [Suspect]
     Indication: PRODUCT USED FOR UNKNOWN INDICATION
     Dosage: 750 MG, TID
     Route: 048
     Dates: start: 20130116, end: 20130409
  2. INCIVO [Suspect]
     Indication: HEPATITIS C
  3. RIBAVIRIN [Concomitant]
     Indication: PRODUCT USED FOR UNKNOWN INDICATION
     Dosage: DOSAGE FORM: UNKNOWN
     Route: 048
  4. PEGASYS [Concomitant]
     Indication: PRODUCT USED FOR UNKNOWN INDICATION
     Dosage: UNK, QW
     Route: 058
  5. MIRTAZAPINE [Concomitant]
     Dosage: DOSAGE FORM: UNSPECIFIED
     Route: 065
  6. MIRTAZAPINE [Concomitant]
     Dosage: UNK, QD
     Route: 065
  7. ASPIRIN [Concomitant]
     Dosage: DOSAGE FORM: UNSPECIFIED
     Route: 065
  8. FOLIC ACID [Concomitant]
     Dosage: DOSAGE FORM: UNSPECIFIED
     Route: 065
  9. OMEPRAZOLE [Concomitant]
     Dosage: DOSAGE FORM: UNSPECIFIED
     Route: 065
  10. CETIRIZINE [Concomitant]
     Dosage: DOSAGE FORM: UNSPECIFIED
     Route: 065
  11. PRAVASTATIN [Concomitant]
     Dosage: DOSAGE FORM: UNSPECIFIED
     Route: 065
  12. GLICLAZIDE [Concomitant]
     Dosage: DOSAGE FORM: UNSPECIFIED, 160 MG IN MORNING AND 80 MG IN EVENING
     Route: 065
  13. GLYCERYL TRINITRATE [Concomitant]
     Dosage: UNK, PRN
     Route: 060
  14. BECLOMETHASONE [Concomitant]
     Dosage: UNK, BID
     Route: 065
  15. GAVISCON (ALGINIC/ALUMINUM/MAGNESIUM/SOD BICARB) [Concomitant]
     Dosage: DOSAGE FORM: UNSPECIFIED
     Route: 065

REACTIONS (1)
  - Electrocardiogram QT prolonged [Unknown]
